FAERS Safety Report 5192926-9 (Version None)
Quarter: 2006Q4

REPORT INFORMATION
  Report Type: 
  Country: None (occurrence: None)
  Receive Date: 20061228
  Receipt Date: 20060223
  Transmission Date: 20070319
  Serious: No
  Sender: FDA-Public Use
  Company Number: US-GLAXOSMITHKLINE-A0594957A

PATIENT
  Age: 33 Year
  Sex: Female

DRUGS (2)
  1. FLONASE [Suspect]
     Route: 045
  2. UNKNOWN [Concomitant]

REACTIONS (1)
  - EPISTAXIS [None]
